FAERS Safety Report 9865512 (Version 1)
Quarter: 2014Q1

REPORT INFORMATION
  Report Type: Spontaneous
  Country: US (occurrence: US)
  Receive Date: 20140203
  Receipt Date: 20140203
  Transmission Date: 20141002
  Serious: No
  Sender: FDA-Public Use
  Company Number: US-ALLERGAN-1309460US

PATIENT
  Age: 71 Year
  Sex: Female

DRUGS (3)
  1. RESTASIS [Suspect]
     Indication: DRY EYE
     Dosage: 2 GTT, BID
     Route: 047
     Dates: start: 201301
  2. VERAPAMIL [Concomitant]
     Indication: HYPERTENSION
     Dosage: UNK
     Route: 048
  3. CRESTOR [Concomitant]
     Indication: BLOOD CHOLESTEROL INCREASED
     Dosage: UNK
     Route: 048

REACTIONS (5)
  - Eye inflammation [Recovering/Resolving]
  - Eye pain [Recovering/Resolving]
  - Eye pain [Recovering/Resolving]
  - Headache [Recovering/Resolving]
  - Headache [Recovering/Resolving]
